FAERS Safety Report 16456006 (Version 1)
Quarter: 2019Q2

REPORT INFORMATION
  Report Type: Report from Study
  Country: CA (occurrence: CA)
  Receive Date: 20190620
  Receipt Date: 20190620
  Transmission Date: 20190711
  Serious: Yes (Other)
  Sender: FDA-Public Use
  Company Number: CA-GLAXOSMITHKLINE-CA2019GSK107731

PATIENT
  Sex: Male

DRUGS (5)
  1. SYMBICORT [Suspect]
     Active Substance: BUDESONIDE\FORMOTEROL FUMARATE DIHYDRATE
     Indication: PRODUCT USED FOR UNKNOWN INDICATION
     Dosage: UNK UNK, BID(200 TURBUHALER 200-6MCG,/ACTUACTION 2 TIMES DAILY)
  2. MEPOLIZUMAB [Suspect]
     Active Substance: MEPOLIZUMAB
     Indication: ASTHMA
     Dosage: 100 MG, Z(MONTHLY)
     Route: 042
  3. PREDNISONE. [Suspect]
     Active Substance: PREDNISONE
     Indication: PRODUCT USED FOR UNKNOWN INDICATION
     Dosage: 1 MG(200TABLET), QD
  4. SIGMA [CHOLINE BITARTRATE\CYSTINE] [Suspect]
     Active Substance: CHOLINE BITARTRATE\CYSTINE
     Indication: PRODUCT USED FOR UNKNOWN INDICATION
     Dosage: UNK(1/2LU 330 QUALITY 1 INHALER REFILLS5 PRINTED)
  5. CEFUROXIME. [Suspect]
     Active Substance: CEFUROXIME
     Indication: PRODUCT USED FOR UNKNOWN INDICATION
     Dosage: 500 MG, BID

REACTIONS (4)
  - Deafness neurosensory [Unknown]
  - Reversible airways obstruction [Unknown]
  - Chest discomfort [Unknown]
  - Gastrointestinal disorder [Unknown]
